FAERS Safety Report 5080059-1 (Version None)
Quarter: 2006Q3

REPORT INFORMATION
  Report Type: 
  Country: None (occurrence: None)
  Receive Date: 20060810
  Receipt Date: 20060728
  Transmission Date: 20061208
  Serious: Yes (Hospitalization, Other)
  Sender: FDA-Public Use
  Company Number: 2006093744

PATIENT
  Sex: 0
  Weight: 130 kg

DRUGS (2)
  1. PREDNISOLONE [Suspect]
     Indication: ARTHRALGIA
     Dosage: 5 MG (5 MG, 1 IN 1 D), UNKNOWN
     Route: 065
  2. ENBREL [Suspect]
     Indication: RHEUMATOID ARTHRITIS
     Dosage: 25MG; 2 IN 1 WEEK (25 MG, 2 IN 1 WK), SUBCUTANEOUS
     Route: 058
     Dates: start: 20060109, end: 20060124

REACTIONS (12)
  - BLOOD POTASSIUM DECREASED [None]
  - BLOOD PRESSURE SYSTOLIC INCREASED [None]
  - C-REACTIVE PROTEIN INCREASED [None]
  - CHEST PAIN [None]
  - DIABETES MELLITUS INADEQUATE CONTROL [None]
  - HEART RATE INCREASED [None]
  - JOINT SWELLING [None]
  - PHARYNGEAL OEDEMA [None]
  - PROTHROMBIN TIME PROLONGED [None]
  - RESTLESSNESS [None]
  - STEROID WITHDRAWAL SYNDROME [None]
  - TREMOR [None]
